FAERS Safety Report 16038021 (Version 1)
Quarter: 2019Q1

REPORT INFORMATION
  Report Type: Spontaneous
  Country: US (occurrence: US)
  Receive Date: 20190305
  Receipt Date: 20190305
  Transmission Date: 20190418
  Serious: Yes (Other)
  Sender: FDA-Public Use
  Company Number: US-TEVA-2019-US-1018098

PATIENT
  Age: 56 Year
  Sex: Female
  Weight: 73.03 kg

DRUGS (2)
  1. ESTRADIOL TEVA [Suspect]
     Active Substance: ESTRADIOL
     Indication: OOPHORECTOMY
     Dosage: 2 MILLIGRAM DAILY;
     Route: 048
     Dates: start: 20180323, end: 20180419
  2. MEDROXYPROGESTERONE ACETATE TEVA [Suspect]
     Active Substance: MEDROXYPROGESTERONE ACETATE
     Indication: OOPHORECTOMY
     Dosage: 1 TABLET BY MOUTH EVERYDAY
     Route: 048
     Dates: start: 201803, end: 20180419

REACTIONS (10)
  - Abnormal faeces [Recovering/Resolving]
  - Faecal volume increased [Recovering/Resolving]
  - Alopecia [Recovering/Resolving]
  - Crying [Recovering/Resolving]
  - Frequent bowel movements [Recovering/Resolving]
  - Feeling of body temperature change [Recovering/Resolving]
  - Malaise [Recovering/Resolving]
  - Diarrhoea [Recovering/Resolving]
  - Suicidal ideation [Recovering/Resolving]
  - Depression [Recovering/Resolving]

NARRATIVE: CASE EVENT DATE: 201803
